FAERS Safety Report 9052154 (Version 1)
Quarter: 2013Q1

REPORT INFORMATION
  Report Type: Spontaneous
  Country: US (occurrence: None)
  Receive Date: 20130131
  Receipt Date: 20130131
  Transmission Date: 20140127
  Serious: Yes (Other)
  Sender: FDA-Public Use
  Company Number: None

PATIENT
  Age: 57 Year
  Sex: Male
  Weight: 97.7 kg

DRUGS (2)
  1. LORAZEPAM [Suspect]
     Indication: ANXIETY DISORDER
     Route: 048
     Dates: start: 20121127, end: 20130110
  2. LORAZEPAM [Suspect]
     Indication: DEPRESSION
     Route: 048
     Dates: start: 20121127, end: 20130110

REACTIONS (6)
  - Tablet physical issue [None]
  - Incorrect dose administered [None]
  - Product substitution issue [None]
  - Product quality issue [None]
  - Anxiety [None]
  - Depression [None]
